FAERS Safety Report 26122569 (Version 1)
Quarter: 2025Q4

REPORT INFORMATION
  Report Type: Spontaneous
  Country: EU (occurrence: EU)
  Receive Date: 20251204
  Receipt Date: 20251204
  Transmission Date: 20260117
  Serious: Yes (Other)
  Sender: NOVARTIS
  Company Number: None

PATIENT
  Age: 57 Year
  Sex: Female
  Weight: 48 kg

DRUGS (2)
  1. CYCLOSPORINE [Suspect]
     Active Substance: CYCLOSPORINE
     Indication: Product used for unknown indication
     Dosage: 125 MG, LA PAZIENTE ASSUME TUTTORA 125 MG/DIE CON LIVELLI DI CICLOSPORINEMIA BASALE E A 2 ORE RIDOTT
     Route: 048
  2. ENVARSUS XR [Suspect]
     Active Substance: TACROLIMUS
     Indication: Renal transplant
     Dosage: UNK, LA PAZIENTE HA ASSUNTO DOSAGGI PARI A 5.75 MG / 6 MG, CON LIVELLI DI TACROLEMIA ADEGUATI PER TI
     Route: 048
     Dates: start: 20250625, end: 20250819

REACTIONS (1)
  - Neurotoxicity [Not Recovered/Not Resolved]

NARRATIVE: CASE EVENT DATE: 20250701
